FAERS Safety Report 14890565 (Version 2)
Quarter: 2018Q2

REPORT INFORMATION
  Report Type: Report from Study
  Country: MX (occurrence: MX)
  Receive Date: 20180514
  Receipt Date: 20180527
  Transmission Date: 20180711
  Serious: Yes (Hospitalization, Other)
  Sender: FDA-Public Use
  Company Number: PHHY2018MX005267

PATIENT
  Sex: Male
  Weight: 45 kg

DRUGS (4)
  1. ATEMPERATOR [Concomitant]
     Indication: SEIZURE
     Dosage: 1 DF, Q12H (10 YEARS AGO)
     Route: 065
  2. ATEMPERATOR [Concomitant]
     Dosage: UNK
  3. RITALIN LA [Suspect]
     Active Substance: METHYLPHENIDATE HYDROCHLORIDE
     Indication: PERSONALITY DISORDER
     Dosage: 20 MG, QD ((10 YEARS AGO)
     Route: 048
  4. RITALIN LA [Suspect]
     Active Substance: METHYLPHENIDATE HYDROCHLORIDE
     Indication: ATTENTION DEFICIT/HYPERACTIVITY DISORDER
     Dosage: 10 MG,  (1 MONTH AGO) (? AFTER BREAKFAST AND ? AFTER MEAL)
     Route: 048

REACTIONS (9)
  - Disturbance in attention [Recovered/Resolved]
  - Abnormal behaviour [Unknown]
  - Product use in unapproved indication [Unknown]
  - Drug prescribing error [Unknown]
  - Syncope [Recovered/Resolved]
  - Decreased appetite [Not Recovered/Not Resolved]
  - Deafness [Not Recovered/Not Resolved]
  - Drug intolerance [Unknown]
  - Wrong technique in product usage process [Unknown]
